FAERS Safety Report 16202956 (Version 1)
Quarter: 2019Q2

REPORT INFORMATION
  Report Type: Report from Study
  Country: TW (occurrence: TW)
  Receive Date: 20190416
  Receipt Date: 20190416
  Transmission Date: 20190711
  Serious: Yes (Hospitalization)
  Sender: FDA-Public Use
  Company Number: TW-ACTELION-A-CH2018-172709

PATIENT
  Age: 64 Year
  Sex: Female

DRUGS (7)
  1. DEANXIT [Suspect]
     Active Substance: FLUPENTIXOL DIHYDROCHLORIDE\MELITRACEN HYDROCHLORIDE
     Indication: INSOMNIA
     Dosage: UNK
     Route: 048
  2. HERBESSER [Concomitant]
     Active Substance: DILTIAZEM HYDROCHLORIDE
  3. OPSUMIT [Suspect]
     Active Substance: MACITENTAN
     Indication: PULMONARY ARTERIAL HYPERTENSION
     Dosage: 10 MG, OD
     Route: 048
     Dates: start: 20170112
  4. ORFARIN [Concomitant]
     Active Substance: WARFARIN SODIUM
  5. RIVOTRIL [Suspect]
     Active Substance: CLONAZEPAM
     Indication: INSOMNIA
     Dosage: 0.5 MG, QD
     Route: 048
  6. RASITOL [Concomitant]
  7. LANOXIN [Concomitant]
     Active Substance: DIGOXIN

REACTIONS (17)
  - Cough [Recovered/Resolved]
  - Tremor [Unknown]
  - Anxiety [Unknown]
  - Gastrointestinal hypermotility [Unknown]
  - Feeling cold [Recovered/Resolved]
  - Oropharyngeal pain [Recovered/Resolved]
  - Gastroenteritis [Unknown]
  - Influenza [Recovered/Resolved]
  - Pericardial effusion [Unknown]
  - Oedema peripheral [Unknown]
  - Dyspnoea [Unknown]
  - Abdominal pain [Unknown]
  - Pyrexia [Unknown]
  - Fasting [Unknown]
  - Pain [Unknown]
  - Parkinson^s disease [Unknown]
  - Chills [Unknown]

NARRATIVE: CASE EVENT DATE: 20180522
